FAERS Safety Report 7892886-3 (Version None)
Quarter: 2011Q4

REPORT INFORMATION
  Report Type: 
  Country: None (occurrence: None)
  Receive Date: 20111104
  Receipt Date: 20111027
  Transmission Date: 20120403
  Serious: Yes (Disabling)
  Sender: FDA-Public Use
  Company Number: AU-B.I. PHARMACEUTICALS,INC./RIDGEFIELD-2011-AU-01976AU

PATIENT
  Sex: Female

DRUGS (8)
  1. PRADAXA [Suspect]
     Indication: ATRIAL FIBRILLATION
     Dosage: 220 MG
     Dates: start: 20110901
  2. AVAPRO [Concomitant]
  3. XALATAN [Concomitant]
  4. ZIMSTAT [Concomitant]
  5. LERCANIDIPINE [Concomitant]
  6. TEMAZEPAM [Concomitant]
  7. FOSAMAX [Concomitant]
  8. METOPROLOL TARTRATE [Concomitant]

REACTIONS (2)
  - BLINDNESS [None]
  - EYE HAEMORRHAGE [None]
